FAERS Safety Report 24376115 (Version 1)
Quarter: 2024Q3

REPORT INFORMATION
  Report Type: Spontaneous
  Country: US (occurrence: None)
  Receive Date: 20240926
  Receipt Date: 20240926
  Transmission Date: 20241017
  Serious: Yes (Hospitalization)
  Sender: Public
  Company Number: None

PATIENT
  Age: 87 Year
  Sex: Male
  Weight: 135 kg

DRUGS (1)
  1. ELIQUIS [Suspect]
     Active Substance: APIXABAN
     Indication: Atrial fibrillation
     Dates: start: 20220209, end: 20230806

REACTIONS (5)
  - Pulmonary embolism [None]
  - Hypercapnia [None]
  - Atrioventricular block [None]
  - Fibrin D dimer increased [None]
  - Tachycardia [None]

NARRATIVE: CASE EVENT DATE: 20230803
